FAERS Safety Report 4265600-0 (Version None)
Quarter: 2004Q1

REPORT INFORMATION
  Report Type: 
  Country: None (occurrence: None)
  Receive Date: 20040107
  Receipt Date: 20040107
  Transmission Date: 20041129
  Serious: No
  Sender: FDA-Public Use
  Company Number: None

PATIENT
  Age: 25 Year
  Sex: Female
  Weight: 86.1834 kg

DRUGS (2)
  1. PAXIL CR [Suspect]
     Indication: DEPRESSION
     Dosage: ONE TABLET DAILY ORAL
     Route: 048
     Dates: start: 20000415, end: 20031229
  2. PAXIL CR [Suspect]
     Indication: SOCIAL PHOBIA
     Dosage: ONE TABLET DAILY ORAL
     Route: 048
     Dates: start: 20000415, end: 20031229

REACTIONS (1)
  - DRUG WITHDRAWAL SYNDROME [None]
